FAERS Safety Report 14382430 (Version 1)
Quarter: 2018Q1

REPORT INFORMATION
  Report Type: Spontaneous
  Country: US (occurrence: US)
  Receive Date: 20180112
  Receipt Date: 20180112
  Transmission Date: 20180509
  Serious: Yes (Death, Other)
  Sender: FDA-Public Use
  Company Number: US-SUNOVION-2018SUN000092

PATIENT
  Age: 55 Year
  Sex: Female

DRUGS (13)
  1. METOPROLOL. [Suspect]
     Active Substance: METOPROLOL
  2. DIPHENHYDRAMINE HYDROCHLORIDE W/NAPROXEN SODIUM [Suspect]
     Active Substance: DIPHENHYDRAMINE HYDROCHLORIDE\NAPROXEN SODIUM
  3. TEMAZEPAM. [Suspect]
     Active Substance: TEMAZEPAM
  4. GABAPENTIN. [Suspect]
     Active Substance: GABAPENTIN
  5. MIRTAZAPINE. [Suspect]
     Active Substance: MIRTAZAPINE
  6. DIPHENHYDRAMINE HYDROCHLORIDE W/IBUPROFEN [Suspect]
     Active Substance: DIPHENHYDRAMINE HYDROCHLORIDE\IBUPROFEN
  7. BENZONATATE. [Suspect]
     Active Substance: BENZONATATE
  8. TRAZODONE [Suspect]
     Active Substance: TRAZODONE HYDROCHLORIDE
  9. LORAZEPAM. [Suspect]
     Active Substance: LORAZEPAM
  10. MELATONIN [Suspect]
     Active Substance: MELATONIN
  11. HYDROCHLOROTHIAZIDE W/LISINOPRIL [Suspect]
     Active Substance: HYDROCHLOROTHIAZIDE\LISINOPRIL
  12. TRAMADOL. [Suspect]
     Active Substance: TRAMADOL
  13. LATUDA [Suspect]
     Active Substance: LURASIDONE HYDROCHLORIDE
     Route: 048

REACTIONS (1)
  - Completed suicide [Fatal]
